FAERS Safety Report 20031961 (Version 1)
Quarter: 2021Q4

REPORT INFORMATION
  Report Type: Spontaneous
  Country: FR (occurrence: FR)
  Receive Date: 20211103
  Receipt Date: 20211103
  Transmission Date: 20220303
  Serious: Yes (Hospitalization, Congenital Anomaly, Other)
  Sender: FDA-Public Use
  Company Number: FR-ABBVIE-21K-056-4141629-00

PATIENT
  Sex: Male
  Weight: 3.45 kg

DRUGS (2)
  1. VALPROATE SODIUM [Suspect]
     Active Substance: VALPROATE SODIUM
     Indication: Maternal exposure timing unspecified
     Route: 064
  2. FOLIC ACID [Concomitant]
     Active Substance: FOLIC ACID
     Indication: Maternal exposure timing unspecified
     Route: 064

REACTIONS (27)
  - Childhood asthma [Unknown]
  - Ear disorder [Unknown]
  - Bronchiolitis [Unknown]
  - Rhinitis [Unknown]
  - Nasopharyngitis [Unknown]
  - Ear infection [Unknown]
  - Asthma [Unknown]
  - Asthma [Unknown]
  - Marfan^s syndrome [Unknown]
  - Congenital mitral valve incompetence [Unknown]
  - Cardiac aneurysm [Unknown]
  - Scoliosis [Unknown]
  - Cognitive disorder [Unknown]
  - Reading disorder [Unknown]
  - Dysgraphia [Unknown]
  - Reading disorder [Unknown]
  - Learning disorder [Unknown]
  - Behaviour disorder [Unknown]
  - Frustration tolerance decreased [Unknown]
  - Myopia [Unknown]
  - Dysphonia [Unknown]
  - Hypermobility syndrome [Unknown]
  - Skin striae [Unknown]
  - Joint hyperextension [Unknown]
  - Educational problem [Unknown]
  - Back pain [Unknown]
  - Foetal exposure during pregnancy [Unknown]
